FAERS Safety Report 9755023 (Version 1)
Quarter: 2013Q4

REPORT INFORMATION
  Report Type: Spontaneous
  Country: US (occurrence: US)
  Receive Date: 20131213
  Receipt Date: 20131213
  Transmission Date: 20140711
  Serious: No
  Sender: FDA-Public Use
  Company Number: US-GLAXOSMITHKLINE-A1010317A

PATIENT
  Age: 60 Year
  Sex: Female
  Weight: 79.5 kg

DRUGS (3)
  1. NICODERM CQ CLEAR 21MG [Suspect]
     Indication: EX-TOBACCO USER
     Dates: start: 20121231, end: 20130131
  2. NICODERM CQ CLEAR 14MG [Suspect]
     Route: 062
     Dates: end: 20130204
  3. SYNTHROID [Concomitant]
     Indication: HYPOTHYROIDISM

REACTIONS (9)
  - Tongue haemorrhage [Recovered/Resolved]
  - Tongue disorder [Not Recovered/Not Resolved]
  - Tongue discolouration [Recovering/Resolving]
  - Infection [Not Recovered/Not Resolved]
  - Tongue coated [Unknown]
  - Oral candidiasis [Unknown]
  - Tongue discolouration [Unknown]
  - Glossodynia [Unknown]
  - Oropharyngeal candidiasis [Unknown]
